FAERS Safety Report 5047165-9 (Version None)
Quarter: 2006Q3

REPORT INFORMATION
  Report Type: 
  Country: None (occurrence: None)
  Receive Date: 20060703
  Receipt Date: 20060613
  Transmission Date: 20061208
  Serious: Yes (Death, Life-Threatening, Other)
  Sender: FDA-Public Use
  Company Number: 2006080799

PATIENT
  Sex: Female

DRUGS (6)
  1. ATARAX [Suspect]
     Indication: TACHYCARDIA
     Dosage: 25 MG, ORAL
     Route: 048
     Dates: start: 20060416, end: 20060422
  2. ELEVIT PRONATAL (MINERALS NOS, VITAMINS  NOS) [Concomitant]
  3. FERROUS SULFATE TAB [Concomitant]
  4. MAGNESIUM (MAGNESIUM) [Concomitant]
  5. UVEDOSE (COLCALCIFEROL) [Concomitant]
  6. SALBUTAMOL (SALBUTAMOL) [Concomitant]

REACTIONS (11)
  - ANAEMIA [None]
  - DRUG EXPOSURE DURING PREGNANCY [None]
  - ECCHYMOSIS [None]
  - ERYTHROBLASTOSIS [None]
  - FOETAL DISORDER [None]
  - FOETAL DISTRESS SYNDROME [None]
  - HYPOXIA [None]
  - INDUCED LABOUR [None]
  - INTRA-UTERINE DEATH [None]
  - LISTERIOSIS [None]
  - PLACENTAL DISORDER [None]
